FAERS Safety Report 12677091 (Version 1)
Quarter: 2016Q3

REPORT INFORMATION
  Report Type: Report from Study
  Country: FR (occurrence: FR)
  Receive Date: 20160823
  Receipt Date: 20160823
  Transmission Date: 20161109
  Serious: Yes (Hospitalization)
  Sender: FDA-Public Use
  Company Number: FR-ROCHE-1815851

PATIENT
  Age: 60 Year
  Sex: Female
  Weight: 50 kg

DRUGS (9)
  1. DIFFU K [Concomitant]
     Active Substance: POTASSIUM CHLORIDE
     Indication: INSOMNIA
     Route: 048
     Dates: start: 20160606
  2. FORLAX [Concomitant]
     Active Substance: POLYETHYLENE GLYCOL 4000
     Dosage: INDICATION: CONSTIPATION PREVENTION
     Route: 048
     Dates: start: 20160606
  3. STILNOX [Concomitant]
     Active Substance: ZOLPIDEM TARTRATE
     Indication: INSOMNIA
     Route: 048
     Dates: start: 20160606
  4. INEXIUM [Concomitant]
     Active Substance: ESOMEPRAZOLE
     Dosage: INDICATION: CONSTIPATION PREVENTION
     Route: 048
     Dates: start: 20160606
  5. VEMURAFENIB [Suspect]
     Active Substance: VEMURAFENIB
     Indication: MALIGNANT MELANOMA
     Dosage: LAST DOSE PRIOR TO SAE WAS 13/AUG/2016 DOSE OF 60?CULMUNITATIVE SINCE FIRST ADMINISTRATION 540?DATE
     Route: 048
     Dates: start: 20160804
  6. KEPPRA [Concomitant]
     Active Substance: LEVETIRACETAM
     Indication: EPILEPSY
     Dosage: INDICATION:EPILEPSY PREVENTION
     Route: 048
     Dates: start: 20160701
  7. CORTANCYL [Concomitant]
     Active Substance: PREDNISONE
     Dosage: INDICATION: CONSTIPATION PREVENTION
     Route: 048
     Dates: start: 20160606
  8. COBIMETINIB [Suspect]
     Active Substance: COBIMETINIB
     Indication: MALIGNANT MELANOMA
     Dosage: LAST DOSE ORIOR TO SAE WAS 13/AUG/2016 DOSE OF 1920?CULMUNITATIVE SINCE FIRST ADMINISTARTION 17280?D
     Route: 048
     Dates: start: 20160804
  9. ACETAMINOPHEN. [Concomitant]
     Active Substance: ACETAMINOPHEN
     Indication: PAIN
     Route: 048
     Dates: start: 20160606

REACTIONS (1)
  - Dermatitis exfoliative [Not Recovered/Not Resolved]

NARRATIVE: CASE EVENT DATE: 20160813
